FAERS Safety Report 9745789 (Version 2)
Quarter: 2014Q3

REPORT INFORMATION
  Report Type: Spontaneous
  Country: KR (occurrence: KR)
  Receive Date: 20131211
  Receipt Date: 20140701
  Transmission Date: 20150326
  Serious: Yes (Other)
  Sender: FDA-Public Use
  Company Number: KR-JNJFOC-20131203595

PATIENT
  Sex: Female

DRUGS (4)
  1. FOLIC ACID. [Concomitant]
     Active Substance: FOLIC ACID
     Route: 048
  2. MTX [Suspect]
     Active Substance: METHOTREXATE SODIUM
     Indication: RHEUMATOID ARTHRITIS
     Dosage: 12.5-25 MG/WEEK
     Route: 048
  3. INFLIXIMAB, RECOMBINANT [Suspect]
     Active Substance: INFLIXIMAB
     Indication: RHEUMATOID ARTHRITIS
     Dosage: 0, 2, 6 AND THEN ONCE EVERY 8 WEEKS UPTO WEEK 30
     Route: 042
  4. MTX [Suspect]
     Active Substance: METHOTREXATE SODIUM
     Indication: RHEUMATOID ARTHRITIS
     Dosage: 12.5-25 MG/WEEK
     Route: 051

REACTIONS (1)
  - Cervix carcinoma [Unknown]
